FAERS Safety Report 6673195-7 (Version None)
Quarter: 2010Q2

REPORT INFORMATION
  Report Type: 
  Country: None (occurrence: None)
  Receive Date: 20100408
  Receipt Date: 20100406
  Transmission Date: 20101027
  Serious: Yes (Other)
  Sender: FDA-Public Use
  Company Number: US-BRISTOL-MYERS SQUIBB COMPANY-15050859

PATIENT
  Sex: Female

DRUGS (2)
  1. COUMADIN [Suspect]
     Route: 065
  2. MULTAQ [Suspect]
     Dosage: TABLET
     Route: 048

REACTIONS (2)
  - DECREASED APPETITE [None]
  - INTERNATIONAL NORMALISED RATIO INCREASED [None]
